FAERS Safety Report 4955676-7 (Version None)
Quarter: 2006Q1

REPORT INFORMATION
  Report Type: 
  Country: None (occurrence: None)
  Receive Date: 20060328
  Receipt Date: 20050118
  Transmission Date: 20060701
  Serious: Yes (Hospitalization, Other)
  Sender: FDA-Public Use
  Company Number: US-MERCK-0501USA02989

PATIENT
  Age: 54 Year
  Sex: Female
  Weight: 141 kg

DRUGS (7)
  1. VIOXX [Suspect]
     Indication: ARTHRALGIA
     Route: 048
     Dates: start: 20010511, end: 20030101
  2. VIOXX [Suspect]
     Route: 048
     Dates: end: 20030101
  3. SYNTHROID [Concomitant]
     Indication: THYROID DISORDER
     Route: 065
  4. LIPITOR [Concomitant]
     Indication: BLOOD CHOLESTEROL INCREASED
     Route: 065
     Dates: start: 19980101
  5. PREMPRO [Concomitant]
     Indication: MENOPAUSE
     Route: 065
     Dates: start: 19990101
  6. LABETALOL HYDROCHLORIDE [Concomitant]
     Indication: HYPERTENSION
     Route: 065
  7. GLUCOTROL [Concomitant]
     Indication: DIABETES MELLITUS
     Route: 065

REACTIONS (12)
  - ARTHROSCOPIC SURGERY [None]
  - CEREBRAL VENOUS THROMBOSIS [None]
  - CEREBROVASCULAR ACCIDENT [None]
  - CEREBROVASCULAR DISORDER [None]
  - DEPRESSION [None]
  - MENISCUS LESION [None]
  - MIGRAINE [None]
  - OSTEOARTHRITIS [None]
  - PALPITATIONS [None]
  - POST-TRAUMATIC STRESS DISORDER [None]
  - RENAL CYST [None]
  - TACHYCARDIA [None]
